FAERS Safety Report 22114282 (Version 1)
Quarter: 2023Q1

REPORT INFORMATION
  Report Type: Spontaneous
  Country: US (occurrence: None)
  Receive Date: 20230317
  Receipt Date: 20230317
  Transmission Date: 20230418
  Serious: Yes (Death)
  Sender: FDA-Public Use
  Company Number: None

PATIENT
  Age: 53 Year
  Sex: Male

DRUGS (1)
  1. PACLITAXEL [Suspect]
     Active Substance: PACLITAXEL
     Indication: Squamous cell carcinoma of the tongue
     Route: 041
     Dates: start: 20230314, end: 20230314

REACTIONS (8)
  - Dyspnoea [None]
  - Tremor [None]
  - Back pain [None]
  - Hypotension [None]
  - Flushing [None]
  - Nasal congestion [None]
  - Dizziness [None]
  - Cardiac arrest [None]
